FAERS Safety Report 18025459 (Version 3)
Quarter: 2021Q2

REPORT INFORMATION
  Report Type: Spontaneous
  Country: US (occurrence: US)
  Receive Date: 20200715
  Receipt Date: 20210615
  Transmission Date: 20210717
  Serious: No
  Sender: FDA-Public Use
  Company Number: US-SA-2020SA180268

PATIENT
  Age: 67 Year
  Sex: Male
  Weight: 85.26 kg

DRUGS (3)
  1. DUPIXENT [Suspect]
     Active Substance: DUPILUMAB
     Indication: DERMATITIS ATOPIC
     Dosage: 300 MG, QOW
     Route: 058
     Dates: start: 20200603
  2. DUPIXENT [Suspect]
     Active Substance: DUPILUMAB
     Dosage: 300 MG, Q4W
     Route: 058
  3. DUPIXENT [Suspect]
     Active Substance: DUPILUMAB
     Dosage: 300 MG, FREQUENCY ? EVERY 4 TO 6 WEEKS
     Dates: start: 202006

REACTIONS (8)
  - Pruritus [Not Recovered/Not Resolved]
  - Surgery [Unknown]
  - Product use issue [Unknown]
  - Dermatitis atopic [Not Recovered/Not Resolved]
  - Therapeutic response shortened [Unknown]
  - Pruritus [Unknown]
  - Ligament rupture [Unknown]
  - Rash papular [Unknown]

NARRATIVE: CASE EVENT DATE: 2021
